FAERS Safety Report 24147293 (Version 1)
Quarter: 2024Q3

REPORT INFORMATION
  Report Type: Spontaneous
  Country: US (occurrence: US)
  Receive Date: 20240729
  Receipt Date: 20240729
  Transmission Date: 20241017
  Serious: No
  Sender: Karo Pharma
  Company Number: US-Karo Pharma-2159716

PATIENT
  Age: 45 Year
  Sex: Male

DRUGS (1)
  1. LAMISIL [Suspect]
     Active Substance: TERBINAFINE HYDROCHLORIDE
     Indication: Product used for unknown indication
     Route: 061

REACTIONS (3)
  - Expired product administered [Unknown]
  - Paraesthesia [Unknown]
  - Pain in extremity [Unknown]
